FAERS Safety Report 13794867 (Version 1)
Quarter: 2017Q3

REPORT INFORMATION
  Report Type: Spontaneous
  Country: US (occurrence: US)
  Receive Date: 20170726
  Receipt Date: 20170726
  Transmission Date: 20171127
  Serious: No
  Sender: FDA-Public Use
  Company Number: US-009507513-1707USA006346

PATIENT
  Sex: Female

DRUGS (1)
  1. PROPECIA [Suspect]
     Active Substance: FINASTERIDE
     Dosage: UNK
     Route: 064

REACTIONS (5)
  - Developmental delay [Unknown]
  - Scoliosis [Unknown]
  - Musculoskeletal disorder [Unknown]
  - Foetal exposure during pregnancy [Unknown]
  - Exposure via father [Unknown]
